FAERS Safety Report 5427414-5 (Version None)
Quarter: 2007Q3

REPORT INFORMATION
  Report Type: 
  Country: None (occurrence: None)
  Receive Date: 20070828
  Receipt Date: 20070813
  Transmission Date: 20080115
  Serious: Yes (Hospitalization, Other)
  Sender: FDA-Public Use
  Company Number: US-ELI_LILLY_AND_COMPANY-US200708002815

PATIENT
  Age: 78 Year
  Sex: Male

DRUGS (7)
  1. CIALIS [Suspect]
     Dates: start: 20070812
  2. DIOVAN [Concomitant]
     Dosage: 80 MG, DAILY (1/D)
  3. TRICOR [Concomitant]
     Dosage: 145 MG, DAILY (1/D)
  4. ZETIA [Concomitant]
     Dosage: 10 MG, DAILY (1/D)
  5. LIPITOR [Concomitant]
     Dosage: 80 MG, DAILY (1/D)
  6. LUMIGAN [Concomitant]
     Dosage: UNK, UNK
     Route: 047
  7. FOLIC ACID [Concomitant]

REACTIONS (1)
  - HAEMORRHAGE INTRACRANIAL [None]
